FAERS Safety Report 8102551-5 (Version None)
Quarter: 2012Q1

REPORT INFORMATION
  Report Type: 
  Country: None (occurrence: None)
  Receive Date: 20120126
  Receipt Date: 20120112
  Transmission Date: 20120608
  Serious: Yes (Hospitalization, Other)
  Sender: FDA-Public Use
  Company Number: D1200127

PATIENT
  Age: 85 Year
  Sex: Female

DRUGS (8)
  1. PROTONIX [Concomitant]
  2. LISINOPRIL [Concomitant]
  3. ASCORBIC ACID [Concomitant]
  4. NORVASC [Concomitant]
  5. VITAMIN A [Concomitant]
  6. ATENOLOL [Concomitant]
  7. JANTOVEN [Suspect]
     Indication: HEART RATE INCREASED
     Dosage: 1/2 TAB ON M AND F, 1 TABL QD REST OF WK, ORAL 1/2 TAB ON M, 1 TAB QD REST OF WK, ORAL
     Route: 048
     Dates: start: 20120101, end: 20120101
  8. WARFARIN SODIUM [Suspect]
     Indication: HEART RATE INCREASED
     Dosage: ORAL
     Route: 048
     Dates: start: 20090101, end: 20120101

REACTIONS (4)
  - CEREBROVASCULAR ACCIDENT [None]
  - INTERNATIONAL NORMALISED RATIO DECREASED [None]
  - DRUG LEVEL DECREASED [None]
  - BLOOD PRESSURE INCREASED [None]
